FAERS Safety Report 6229848-8 (Version None)
Quarter: 2009Q2

REPORT INFORMATION
  Report Type: 
  Country: None (occurrence: None)
  Receive Date: 20090615
  Receipt Date: 20090615
  Transmission Date: 20091009
  Serious: Yes (Other)
  Sender: FDA-Public Use
  Company Number: US-PFIZER INC-2009198427

PATIENT
  Sex: Male
  Weight: 106.59 kg

DRUGS (4)
  1. XALATAN [Suspect]
     Indication: GLAUCOMA
     Route: 047
  2. TIMOLOL MALEATE [Interacting]
  3. VITAMIN B6 [Concomitant]
  4. ACETYLSALICYLIC ACID [Concomitant]

REACTIONS (2)
  - DIABETES MELLITUS [None]
  - MEMORY IMPAIRMENT [None]
